FAERS Safety Report 14046129 (Version 2)
Quarter: 2017Q4

REPORT INFORMATION
  Report Type: Spontaneous
  Country: FR (occurrence: FR)
  Receive Date: 20171005
  Receipt Date: 20171025
  Transmission Date: 20180321
  Serious: Yes (Other)
  Sender: FDA-Public Use
  Company Number: FR-MERCK KGAA-2028814

PATIENT
  Age: 44 Year
  Sex: Female

DRUGS (3)
  1. TEMERIT [Concomitant]
     Active Substance: NEBIVOLOL
  2. NOVOTHYROX [Suspect]
     Active Substance: LEVOTHYROXINE SODIUM
     Indication: HORMONE REPLACEMENT THERAPY
     Route: 048
     Dates: start: 201704
  3. LUTERAN [Concomitant]
     Active Substance: CHLORMADINONE ACETATE

REACTIONS (2)
  - Hypothyroidism [Not Recovered/Not Resolved]
  - Blood thyroid stimulating hormone increased [Not Recovered/Not Resolved]

NARRATIVE: CASE EVENT DATE: 201706
